FAERS Safety Report 18941342 (Version 3)
Quarter: 2022Q4

REPORT INFORMATION
  Report Type: Report from Study
  Country: US (occurrence: US)
  Receive Date: 20210225
  Receipt Date: 20221214
  Transmission Date: 20230112
  Serious: No
  Sender: FDA-Public Use
  Company Number: NVSC2021US044594

PATIENT
  Age: 28 Year
  Sex: Male
  Weight: 90.71 kg

DRUGS (2)
  1. COSENTYX [Suspect]
     Active Substance: SECUKINUMAB
     Indication: Psoriasis
     Dosage: 300 MG, QMO
     Route: 058
  2. COSENTYX [Suspect]
     Active Substance: SECUKINUMAB
     Dosage: 300 MG, QMO (2 PENS/150 MG/ML)
     Route: 058
     Dates: start: 2018

REACTIONS (5)
  - Psoriasis [Unknown]
  - Skin hyperpigmentation [Unknown]
  - Neoplasm [Unknown]
  - Dysplastic naevus [Unknown]
  - Skin mass [Unknown]

NARRATIVE: CASE EVENT DATE: 20221122
